FAERS Safety Report 14351252 (Version 1)
Quarter: 2018Q1

REPORT INFORMATION
  Report Type: Spontaneous
  Country: CO (occurrence: CO)
  Receive Date: 20180104
  Receipt Date: 20180104
  Transmission Date: 20180509
  Serious: Yes (Other)
  Sender: FDA-Public Use
  Company Number: CO-PFIZER INC-2017510310

PATIENT
  Age: 37 Year
  Sex: Male

DRUGS (4)
  1. ACETAMINOPHEN. [Concomitant]
     Active Substance: ACETAMINOPHEN
     Dosage: UNK
  2. EPAMIN [Suspect]
     Active Substance: PHENYTOIN SODIUM
     Indication: BENIGN NEOPLASM
     Dosage: 500 MG, DAILY (200 MG MORNING, 100 MG AFTERNOON, 200 MG EVENING)
     Dates: start: 201710
  3. EPAMIN [Suspect]
     Active Substance: PHENYTOIN SODIUM
     Indication: CRANIOTOMY
     Dosage: 500 MG, DAILY (200 MG MORNING, 100 MG AFTERNOON, 200 MG EVENING)
     Dates: start: 201710
  4. KEPPRA [Concomitant]
     Active Substance: LEVETIRACETAM
     Dosage: UNK
     Dates: start: 2016

REACTIONS (8)
  - Suspected counterfeit product [Unknown]
  - Vertigo [Not Recovered/Not Resolved]
  - Irritability [Unknown]
  - Seizure [Unknown]
  - Dizziness postural [Not Recovered/Not Resolved]
  - Headache [Unknown]
  - Counterfeit product administered [Unknown]
  - Asthenia [Unknown]

NARRATIVE: CASE EVENT DATE: 2017
